FAERS Safety Report 11735043 (Version 5)
Quarter: 2017Q4

REPORT INFORMATION
  Report Type: Report from Study
  Country: US (occurrence: US)
  Receive Date: 20151113
  Receipt Date: 20171120
  Transmission Date: 20180320
  Serious: Yes (Death, Hospitalization, Other)
  Sender: FDA-Public Use
  Company Number: US-SIGMA-TAU US-2015STPI000891

PATIENT
  Age: 14 Year
  Sex: Female
  Weight: 132.3 kg

DRUGS (23)
  1. CEFEPIME [Suspect]
     Active Substance: CEFEPIME HYDROCHLORIDE
     Indication: KLEBSIELLA INFECTION
     Dosage: 10 MG/M2, UNK
     Route: 042
     Dates: start: 20120510
  2. CALCIUM GLUCONATE. [Suspect]
     Active Substance: CALCIUM GLUCONATE
     Indication: PRODUCT USED FOR UNKNOWN INDICATION
     Route: 065
  3. ZOFRAN [Concomitant]
     Active Substance: ONDANSETRON HYDROCHLORIDE
  4. VINCRISTINE SULFATE. [Suspect]
     Active Substance: VINCRISTINE SULFATE
     Indication: B PRECURSOR TYPE ACUTE LEUKAEMIA
     Dosage: 1.5 MG/M2, QW
     Dates: start: 20120430, end: 20120521
  5. HYDROCODONE BITARTRATE W/PARACETAMOL [Concomitant]
     Active Substance: ACETAMINOPHEN\HYDROCODONE BITARTRATE
  6. FENTANYL. [Concomitant]
     Active Substance: FENTANYL
  7. LMX 4 [Concomitant]
     Indication: PRODUCT USED FOR UNKNOWN INDICATION
  8. VANCOMYCIN [Concomitant]
     Active Substance: VANCOMYCIN
  9. PHENERGAN [Concomitant]
     Active Substance: PROMETHAZINE HYDROCHLORIDE
  10. IBUPROFEN. [Concomitant]
     Active Substance: IBUPROFEN
  11. FAMOTIDINE. [Concomitant]
     Active Substance: FAMOTIDINE
  12. ONDANSETRON [Concomitant]
     Active Substance: ONDANSETRON
     Indication: PRODUCT USED FOR UNKNOWN INDICATION
  13. DEXAMETHASONE SODIUM PHOSPHATE. [Suspect]
     Active Substance: DEXAMETHASONE SODIUM PHOSPHATE
     Indication: B PRECURSOR TYPE ACUTE LEUKAEMIA
     Dosage: 10 MG/M2, BID, DAYS 1-5 AND 15-19
     Route: 048
     Dates: start: 20120430, end: 20120519
  14. MIRALAX [Concomitant]
     Active Substance: POLYETHYLENE GLYCOL 3350
  15. SEPTRA [Concomitant]
     Active Substance: SULFAMETHOXAZOLE\TRIMETHOPRIM
  16. PIPERACILLIN/TAZOBACTAM [Concomitant]
     Active Substance: PIPERACILLIN SODIUM\TAZOBACTAM SODIUM
  17. PEGASPARGASE [Suspect]
     Active Substance: PEGASPARGASE
     Indication: B PRECURSOR TYPE ACUTE LEUKAEMIA
     Dosage: 2500 IU/M2, ON DAY 3 AND 17
     Route: 042
     Dates: start: 20120430, end: 20120516
  18. TEMSIROLIMUS [Suspect]
     Active Substance: TEMSIROLIMUS
     Indication: B PRECURSOR TYPE ACUTE LEUKAEMIA
     Dosage: 7.5 MG/M2, DAYS 1, 8, AND 15
     Route: 042
     Dates: start: 20120430, end: 20120514
  19. MITOXANTRONE HYDROCHLORIDE. [Suspect]
     Active Substance: MITOXANTRONE HYDROCHLORIDE
     Indication: B PRECURSOR TYPE ACUTE LEUKAEMIA
     Dosage: 10 MG/M2, UNK
     Dates: start: 20120430, end: 20120501
  20. METHOTREXATE SODIUM. [Suspect]
     Active Substance: METHOTREXATE SODIUM
     Indication: B PRECURSOR TYPE ACUTE LEUKAEMIA
     Dosage: 8-15 MG, DAYS 1 AND 8
     Route: 037
     Dates: start: 20120430, end: 20120507
  21. AMBISONE [Suspect]
     Active Substance: AMPHOTERICIN B
     Indication: CANDIDA TEST POSITIVE
     Route: 065
     Dates: start: 20120520
  22. IMITREX [Concomitant]
     Active Substance: SUMATRIPTAN SUCCINATE
  23. MORPHINE [Concomitant]
     Active Substance: MORPHINE

REACTIONS (12)
  - Acidosis [Unknown]
  - Stomatitis [Unknown]
  - Hypotension [Unknown]
  - Enterocolitis [Unknown]
  - Seizure [Recovered/Resolved]
  - Cardiac arrest [Recovered/Resolved]
  - Encephalopathy [Unknown]
  - Posterior reversible encephalopathy syndrome [Unknown]
  - Sepsis [Fatal]
  - Respiratory failure [Unknown]
  - Hypocalcaemia [Recovered/Resolved]
  - Hypercalcaemia [Recovered/Resolved]

NARRATIVE: CASE EVENT DATE: 20120517
